APPROVED DRUG PRODUCT: ROPINIROLE HYDROCHLORIDE
Active Ingredient: ROPINIROLE HYDROCHLORIDE
Strength: EQ 4MG BASE
Dosage Form/Route: TABLET;ORAL
Application: A090135 | Product #006 | TE Code: AB
Applicant: GLENMARK PHARMACEUTICALS LTD
Approved: Feb 25, 2010 | RLD: No | RS: No | Type: RX